FAERS Safety Report 8692583 (Version 3)
Quarter: 2012Q4

REPORT INFORMATION
  Report Type: 
  Country: US (occurrence: US)
  Receive Date: 20120730
  Receipt Date: 20120927
  Transmission Date: 20130627
  Serious: Yes (Other)
  Sender: FDA-Public Use
  Company Number: US-PFIZER INC-2012179341

PATIENT
  Age: 56 Year
  Sex: Female
  Weight: 78.46 kg

DRUGS (2)
  1. PREMPRO [Suspect]
     Dosage: 0.625 mg, 1x/day
     Route: 048
     Dates: end: 201108
  2. PREMPRO [Suspect]
     Dosage: UNK
     Route: 048

REACTIONS (9)
  - Bedridden [Not Recovered/Not Resolved]
  - Activities of daily living impaired [Not Recovered/Not Resolved]
  - Nausea [Not Recovered/Not Resolved]
  - Presyncope [Not Recovered/Not Resolved]
  - Headache [Not Recovered/Not Resolved]
  - Malaise [Not Recovered/Not Resolved]
  - Feeling abnormal [Not Recovered/Not Resolved]
  - Feeling abnormal [Not Recovered/Not Resolved]
  - Hot flush [Not Recovered/Not Resolved]
